FAERS Safety Report 9611188 (Version 2)
Quarter: 2013Q4

REPORT INFORMATION
  Report Type: Report from Study
  Country: GB (occurrence: GB)
  Receive Date: 20131009
  Receipt Date: 20131109
  Transmission Date: 20140711
  Serious: Yes (Life-Threatening, Hospitalization)
  Sender: FDA-Public Use
  Company Number: GB-ROCHE-1285671

PATIENT
  Age: 41 Year
  Sex: Female

DRUGS (2)
  1. RITUXIMAB [Suspect]
     Indication: RHEUMATOID ARTHRITIS
     Dosage: DATE OF LAST DOSE PRIOR TO SAE WAS ON 20/OCT/2011
     Route: 065
     Dates: start: 20100928
  2. TOCILIZUMAB [Suspect]
     Indication: RHEUMATOID ARTHRITIS
     Dosage: DATE OF LAST DOSE PRIOR TO SAE WAS ON 16/APR/2013
     Route: 065
     Dates: start: 20121025

REACTIONS (1)
  - Endometrial cancer [Recovered/Resolved]
